FAERS Safety Report 6278829-7 (Version None)
Quarter: 2009Q3

REPORT INFORMATION
  Report Type: 
  Country: None (occurrence: None)
  Receive Date: 20090723
  Receipt Date: 20070925
  Transmission Date: 20100115
  Serious: Yes (Other)
  Sender: FDA-Public Use
  Company Number: US-ASTRAZENECA-2007UW15944

PATIENT
  Age: 8 Year
  Sex: Male
  Weight: 81.6 kg

DRUGS (12)
  1. SEROQUEL [Suspect]
     Indication: BIPOLAR DISORDER
     Dosage: 100 MG TO 200 MG
     Route: 048
     Dates: start: 19990101
  2. SEROQUEL [Suspect]
     Indication: DEPRESSION
     Dosage: 100 MG TO 200 MG
     Route: 048
     Dates: start: 19990101
  3. SEROQUEL [Suspect]
     Dosage: 25, 100 MG
     Route: 048
     Dates: start: 20030310
  4. SEROQUEL [Suspect]
     Dosage: 25, 100 MG
     Route: 048
     Dates: start: 20030310
  5. ABILIFY [Concomitant]
     Dates: start: 20060101, end: 20070101
  6. RISPERDAL [Concomitant]
     Dates: start: 20030102
  7. DITROPAN XL [Concomitant]
     Route: 048
     Dates: start: 20030415
  8. MAALOX [Concomitant]
     Route: 048
     Dates: start: 20030415
  9. DEPAKOTE [Concomitant]
     Indication: AFFECTIVE DISORDER
     Route: 048
     Dates: start: 19990818
  10. AMBIEN [Concomitant]
     Route: 048
     Dates: start: 20030415
  11. CLARINEX [Concomitant]
     Route: 048
     Dates: start: 20030415
  12. DEXEDRINE [Concomitant]
     Route: 048
     Dates: start: 19990818

REACTIONS (8)
  - ANOXIC ENCEPHALOPATHY [None]
  - BRAIN INJURY [None]
  - DIABETES MELLITUS [None]
  - GASTROINTESTINAL DISORDER [None]
  - GLYCOSYLATED HAEMOGLOBIN INCREASED [None]
  - HYPERGLYCAEMIA [None]
  - HYPERSENSITIVITY [None]
  - LOCALISED INFECTION [None]
